FAERS Safety Report 25006824 (Version 1)
Quarter: 2025Q1

REPORT INFORMATION
  Report Type: Report from Study
  Country: US (occurrence: None)
  Receive Date: 20250225
  Receipt Date: 20250225
  Transmission Date: 20250409
  Serious: Yes (Hospitalization, Other)
  Sender: SUPERNUS PHARMACEUTICALS, INC.
  Company Number: US-SUPERNUS Pharmaceuticals, Inc.-SUP202502-000457

PATIENT
  Age: 29 Year
  Sex: Male

DRUGS (4)
  1. QELBREE [Suspect]
     Active Substance: VILOXAZINE HYDROCHLORIDE
     Indication: Product used for unknown indication
     Dates: start: 20250127
  2. RISPERIDONE [Concomitant]
     Active Substance: RISPERIDONE
  3. HYDROXYZINE [Concomitant]
     Active Substance: HYDROXYZINE HYDROCHLORIDE
     Indication: Anxiety
  4. GUANFACINE [Concomitant]
     Active Substance: GUANFACINE

REACTIONS (14)
  - Cardiac arrest [Recovered/Resolved]
  - Heart rate increased [Recovered/Resolved]
  - Increased appetite [Unknown]
  - Hyperphagia [Unknown]
  - Apathy [Unknown]
  - Asthenia [Unknown]
  - Decreased interest [Unknown]
  - Disturbance in attention [Unknown]
  - Hot flush [Recovered/Resolved]
  - Hyperhidrosis [Recovered/Resolved]
  - Scab [Recovered/Resolved]
  - Fatigue [Unknown]
  - Somnolence [Unknown]
  - Fatigue [Recovered/Resolved]

NARRATIVE: CASE EVENT DATE: 20250101
